FAERS Safety Report 8424741-4 (Version None)
Quarter: 2012Q2

REPORT INFORMATION
  Report Type: 
  Country: None (occurrence: None)
  Receive Date: 20120611
  Receipt Date: 20120531
  Transmission Date: 20120825
  Serious: No
  Sender: FDA-Public Use
  Company Number: US-BIOGENIDEC-2012BI019323

PATIENT
  Sex: Male

DRUGS (2)
  1. TYSABRI [Suspect]
     Indication: MULTIPLE SCLEROSIS
     Route: 042
     Dates: start: 20080321, end: 20101213
  2. TYSABRI [Suspect]
     Route: 042
     Dates: start: 20120522

REACTIONS (2)
  - EPIGASTRIC DISCOMFORT [None]
  - DEMENTIA [None]
